FAERS Safety Report 13814266 (Version 1)
Quarter: 2017Q3

REPORT INFORMATION
  Report Type: Spontaneous
  Country: US (occurrence: US)
  Receive Date: 20170728
  Receipt Date: 20170728
  Transmission Date: 20171127
  Serious: Yes (Hospitalization)
  Sender: FDA-Public Use
  Company Number: None

PATIENT
  Age: 65 Year
  Sex: Female

DRUGS (9)
  1. AZELASTINE SPR [Concomitant]
  2. NITROGLYCERN (GLYCERYL TRINITRATE) [Concomitant]
     Active Substance: NITROGLYCERIN
  3. PAZEO DRO [Concomitant]
  4. AMOX/K CLAV [Concomitant]
     Active Substance: AMOXICILLIN\CLAVULANATE POTASSIUM
  5. NOVOLOG [Concomitant]
     Active Substance: INSULIN ASPART
  6. PREDNISONE. [Concomitant]
     Active Substance: PREDNISONE
  7. VELPHORO [Concomitant]
     Active Substance: FERRIC OXYHYDROXIDE
  8. SILDENAFIL 30 MG TAB AMGEN [Suspect]
     Active Substance: SILDENAFIL
     Indication: PULMONARY HYPERTENSION
     Route: 048
     Dates: start: 20140508
  9. CARVEDILOL. [Concomitant]
     Active Substance: CARVEDILOL

REACTIONS (1)
  - Lung infection [None]

NARRATIVE: CASE EVENT DATE: 201707
